FAERS Safety Report 12729089 (Version 1)
Quarter: 2016Q3

REPORT INFORMATION
  Report Type: Spontaneous
  Country: US (occurrence: US)
  Receive Date: 20160908
  Receipt Date: 20160908
  Transmission Date: 20161109
  Serious: Yes (Other)
  Sender: FDA-Public Use
  Company Number: None

PATIENT
  Age: 52 Year
  Sex: Female
  Weight: 67.5 kg

DRUGS (12)
  1. PHENOBARBITAL. [Concomitant]
     Active Substance: PHENOBARBITAL
  2. LISINOPRIL. [Concomitant]
     Active Substance: LISINOPRIL
  3. CLONAZAPAM, GENERIC KLONOPIN [Concomitant]
     Active Substance: CLONAZEPAM
  4. ARMOUR THYROID [Concomitant]
     Active Substance: THYROID, PORCINE
  5. CBD OIL [Concomitant]
     Active Substance: CANNABIDIOL
  6. LEVETIRACETAM. [Suspect]
     Active Substance: LEVETIRACETAM
  7. HYDROCODONE [Concomitant]
     Active Substance: HYDROCODONE
  8. VITAMINS [Concomitant]
     Active Substance: VITAMINS
  9. BLACK COHOSH [Concomitant]
     Active Substance: BLACK COHOSH
  10. CORTISONE [Concomitant]
     Active Substance: CORTISONE\HYDROCORTISONE
  11. O2 [Concomitant]
  12. IBUPROFEN. [Concomitant]
     Active Substance: IBUPROFEN

REACTIONS (11)
  - Balance disorder [None]
  - Life support [None]
  - Drug titration error [None]
  - Irritability [None]
  - Therapy change [None]
  - Fall [None]
  - Dizziness [None]
  - Coma [None]
  - Rash [None]
  - Anger [None]
  - Rib fracture [None]

NARRATIVE: CASE EVENT DATE: 20160902
